FAERS Safety Report 9803337 (Version 1)
Quarter: 2014Q1

REPORT INFORMATION
  Report Type: Spontaneous
  Country: US (occurrence: US)
  Receive Date: 20140108
  Receipt Date: 20140108
  Transmission Date: 20141002
  Serious: Yes (Death)
  Sender: FDA-Public Use
  Company Number: US-BAYER-2014-003307

PATIENT
  Age: 24 Year
  Sex: Female

DRUGS (5)
  1. DIPHENHYDRAMINE HYDROCHLORIDE [Suspect]
  2. HEROIN [Suspect]
  3. ALPRAZOLAM [Suspect]
  4. QUININE [Suspect]
  5. ETHANOL [Suspect]

REACTIONS (1)
  - Drug abuse [Fatal]
